FAERS Safety Report 25479385 (Version 1)
Quarter: 2025Q2

REPORT INFORMATION
  Report Type: Spontaneous
  Country: US (occurrence: None)
  Receive Date: 20250625
  Receipt Date: 20250625
  Transmission Date: 20250716
  Serious: Yes (Other)
  Sender: FDA-CTU
  Company Number: None

PATIENT
  Age: 58 Year
  Sex: Female

DRUGS (2)
  1. IBRANCE [Suspect]
     Active Substance: PALBOCICLIB
     Indication: Breast cancer female
     Route: 048
  2. VERZENIO [Suspect]
     Active Substance: ABEMACICLIB

REACTIONS (3)
  - Blood potassium decreased [None]
  - Blood magnesium decreased [None]
  - Pneumonitis [None]
